FAERS Safety Report 7187775-6 (Version None)
Quarter: 2010Q4

REPORT INFORMATION
  Report Type: 
  Country: None (occurrence: None)
  Receive Date: 20101222
  Receipt Date: 20101209
  Transmission Date: 20110411
  Serious: Yes (Other)
  Sender: FDA-Public Use
  Company Number: GB-MYLANLABS-2010S1022833

PATIENT
  Age: 72 Year
  Sex: Female

DRUGS (2)
  1. FUROSEMIDE [Suspect]
     Indication: HYPERTENSION
  2. RAMIPRIL [Suspect]
     Indication: HYPERTENSION

REACTIONS (1)
  - TRANSIENT ISCHAEMIC ATTACK [None]
